FAERS Safety Report 5774688-7 (Version None)
Quarter: 2008Q2

REPORT INFORMATION
  Report Type: 
  Country: None (occurrence: None)
  Receive Date: 20080616
  Receipt Date: 20080616
  Transmission Date: 20081010
  Serious: Yes (Hospitalization)
  Sender: FDA-Public Use
  Company Number: None

PATIENT
  Sex: Female
  Weight: 75.0703 kg

DRUGS (2)
  1. VELCADE [Suspect]
     Dosage: DAY 1,4,8,11 Q 21 IV
     Route: 042
     Dates: start: 20080401, end: 20080610
  2. ADRIAMYCIN PFS [Suspect]
     Dosage: DAY 1, 8 Q 21DAYS IV
     Route: 042
     Dates: start: 20080401, end: 20080610

REACTIONS (3)
  - CHEST PAIN [None]
  - DYSPNOEA [None]
  - VOMITING [None]
